FAERS Safety Report 6089507-1 (Version None)
Quarter: 2009Q1

REPORT INFORMATION
  Report Type: 
  Country: None (occurrence: None)
  Receive Date: 20090219
  Receipt Date: 20090219
  Transmission Date: 20090719
  Serious: Yes (Life-Threatening, Disabling, Other)
  Sender: FDA-Public Use
  Company Number: None

PATIENT
  Age: 67 Year
  Sex: Female
  Weight: 108.8633 kg

DRUGS (1)
  1. METOPROLOL SUCCINATE ER 50 MG TABS ETHEX [Suspect]
     Indication: ATRIAL FIBRILLATION
     Dosage: 50 MGM OD ORAL
     Route: 048
     Dates: start: 20070901, end: 20090207

REACTIONS (11)
  - ABDOMINAL PAIN [None]
  - ALOPECIA [None]
  - BLOOD PRESSURE INCREASED [None]
  - DYSPNOEA [None]
  - INSOMNIA [None]
  - NAUSEA [None]
  - NO THERAPEUTIC RESPONSE [None]
  - OEDEMA [None]
  - PALPITATIONS [None]
  - PERIPHERAL COLDNESS [None]
  - PRURITUS [None]
